FAERS Safety Report 23673367 (Version 1)
Quarter: 2024Q1

REPORT INFORMATION
  Report Type: Report from Study
  Country: NL (occurrence: NL)
  Receive Date: 20240326
  Receipt Date: 20240326
  Transmission Date: 20240409
  Serious: Yes (Hospitalization)
  Sender: FDA-Public Use
  Company Number: NL-ARBOR PHARMACEUTICALS, LLC-NL-2024AZR000310

PATIENT
  Age: 68 Year
  Sex: Male

DRUGS (8)
  1. TRIPTODUR [Suspect]
     Active Substance: TRIPTORELIN
     Indication: Prostate cancer
     Dosage: 0.125 MILLIGRAM(S) (22.5 MILLIGRAM(S), 1 IN 6 MONTH)
     Route: 030
     Dates: start: 20230317, end: 20230317
  2. TRIPTODUR [Suspect]
     Active Substance: TRIPTORELIN
     Dosage: 0.125 MILLIGRAM(S) (22.5 MILLIGRAM(S), 1 IN 6 MONTH)
     Route: 030
     Dates: start: 20230914, end: 20230914
  3. TRIPTODUR [Suspect]
     Active Substance: TRIPTORELIN
     Dosage: 0.125 MILLIGRAM(S) (22.5 MILLIGRAM(S), 1 IN 6 MONTH)
     Route: 030
     Dates: start: 20240312, end: 20240312
  4. TRIPTODUR [Suspect]
     Active Substance: TRIPTORELIN
  5. TRIPTODUR [Suspect]
     Active Substance: TRIPTORELIN
  6. PANTOPRAZOLE [Concomitant]
     Active Substance: PANTOPRAZOLE
     Indication: Product used for unknown indication
     Dosage: 40MG X 1DD1
     Route: 065
  7. METOPROLOL SUCCINATE [Concomitant]
     Active Substance: METOPROLOL SUCCINATE
     Indication: Product used for unknown indication
     Dosage: 47.5 MG X 1DD1
     Route: 065
  8. OLMESARTAN [Concomitant]
     Active Substance: OLMESARTAN
     Indication: Product used for unknown indication
     Dosage: 40/5 X 1DD1
     Route: 065

REACTIONS (1)
  - Blood glucose increased [Recovered/Resolved]

NARRATIVE: CASE EVENT DATE: 20240212
